FAERS Safety Report 15781154 (Version 1)
Quarter: 2019Q1

REPORT INFORMATION
  Report Type: Spontaneous
  Country: BR (occurrence: BR)
  Receive Date: 20190102
  Receipt Date: 20190102
  Transmission Date: 20190417
  Serious: Yes (Hospitalization)
  Sender: FDA-Public Use
  Company Number: BR-SA-2018SA394846

PATIENT
  Sex: Female

DRUGS (2)
  1. ARAVA [Suspect]
     Active Substance: LEFLUNOMIDE
     Dosage: UNK UNK, UNK
     Route: 065
  2. ENBREL [Suspect]
     Active Substance: ETANERCEPT
     Indication: RHEUMATOID ARTHRITIS
     Dosage: ONCE WEEKLY
     Route: 065
     Dates: start: 201201, end: 201403

REACTIONS (17)
  - Fatigue [Not Recovered/Not Resolved]
  - Dyspnoea [Recovered/Resolved]
  - Pleural effusion [Recovered/Resolved]
  - Swelling [Recovered/Resolved]
  - Injection site pain [Recovered/Resolved]
  - Hair colour changes [Not Recovered/Not Resolved]
  - Face injury [Recovered/Resolved]
  - Chest pain [Recovered/Resolved]
  - Nodule [Recovered/Resolved]
  - Fall [Not Recovered/Not Resolved]
  - Hair texture abnormal [Not Recovered/Not Resolved]
  - Pain [Recovering/Resolving]
  - Gait disturbance [Not Recovered/Not Resolved]
  - Finger deformity [Not Recovered/Not Resolved]
  - Fluid retention [Recovered/Resolved]
  - Product use issue [Unknown]
  - Gait disturbance [Not Recovered/Not Resolved]

NARRATIVE: CASE EVENT DATE: 2013
